FAERS Safety Report 4375160-1 (Version None)
Quarter: 2004Q2

REPORT INFORMATION
  Report Type: 
  Country: None (occurrence: None)
  Receive Date: 20040603
  Receipt Date: 20040520
  Transmission Date: 20050107
  Serious: Yes (Hospitalization)
  Sender: FDA-Public Use
  Company Number: JP-JNJFOC-20040500861

PATIENT
  Age: 31 Year
  Sex: Female
  Weight: 37 kg

DRUGS (11)
  1. REMICADE [Suspect]
     Indication: ANAL FISTULA
     Dosage: IN 1 AS NECESSARY, INTRAVENOUS DRIP; SEE IMAGE
     Route: 041
     Dates: start: 20031009, end: 20031009
  2. REMICADE [Suspect]
     Indication: CROHN'S DISEASE
     Dosage: IN 1 AS NECESSARY, INTRAVENOUS DRIP; SEE IMAGE
     Route: 041
     Dates: start: 20031009, end: 20031009
  3. REMICADE [Suspect]
     Indication: ANAL FISTULA
     Dosage: IN 1 AS NECESSARY, INTRAVENOUS DRIP; SEE IMAGE
     Route: 041
     Dates: start: 20031024, end: 20031024
  4. REMICADE [Suspect]
     Indication: CROHN'S DISEASE
     Dosage: IN 1 AS NECESSARY, INTRAVENOUS DRIP; SEE IMAGE
     Route: 041
     Dates: start: 20031024, end: 20031024
  5. REMICADE [Suspect]
     Indication: ANAL FISTULA
     Dosage: IN 1 AS NECESSARY, INTRAVENOUS DRIP; SEE IMAGE
     Route: 041
     Dates: start: 20031120, end: 20031120
  6. REMICADE [Suspect]
     Indication: CROHN'S DISEASE
     Dosage: IN 1 AS NECESSARY, INTRAVENOUS DRIP; SEE IMAGE
     Route: 041
     Dates: start: 20031120, end: 20031120
  7. REMICADE [Suspect]
     Indication: ANAL FISTULA
     Dosage: IN 1 AS NECESSARY, INTRAVENOUS DRIP; SEE IMAGE
     Route: 041
     Dates: start: 20040416, end: 20040416
  8. REMICADE [Suspect]
     Indication: CROHN'S DISEASE
     Dosage: IN 1 AS NECESSARY, INTRAVENOUS DRIP; SEE IMAGE
     Route: 041
     Dates: start: 20040416, end: 20040416
  9. REMICADE [Suspect]
     Indication: ANAL FISTULA
     Dosage: IN 1 AS NECESSARY, INTRAVENOUS DRIP; SEE IMAGE
     Route: 041
     Dates: start: 20040430, end: 20040430
  10. REMICADE [Suspect]
     Indication: CROHN'S DISEASE
     Dosage: IN 1 AS NECESSARY, INTRAVENOUS DRIP; SEE IMAGE
     Route: 041
     Dates: start: 20040430, end: 20040430
  11. PENTASA [Concomitant]

REACTIONS (8)
  - BLOOD PRESSURE DECREASED [None]
  - C-REACTIVE PROTEIN INCREASED [None]
  - HEPATOCELLULAR DAMAGE [None]
  - HYPERSENSITIVITY [None]
  - INADEQUATE DIET [None]
  - MALAISE [None]
  - RASH GENERALISED [None]
  - SYNCOPE [None]
